FAERS Safety Report 7018746-8 (Version None)
Quarter: 2010Q3

REPORT INFORMATION
  Report Type: 
  Country: None (occurrence: None)
  Receive Date: 20100928
  Receipt Date: 20100913
  Transmission Date: 20110219
  Serious: Yes (Hospitalization)
  Sender: FDA-Public Use
  Company Number: FR-SHIRE-SPV1-2010-01645

PATIENT
  Sex: Male

DRUGS (6)
  1. MIDON [Suspect]
     Dosage: 2 DF, 2X/DAY:BID
     Route: 048
     Dates: start: 20100521, end: 20100601
  2. MODOPAR [Suspect]
     Indication: PARKINSON'S DISEASE
     Dosage: 5 DF, (1 DOSAGE FORMS, 100MG/25MG)
     Route: 048
     Dates: start: 20060707, end: 20100601
  3. MODOPAR [Suspect]
     Dosage: 2 DF, (1 DOSAGE FORMS, 50MG/12.5MG)
     Route: 048
     Dates: start: 20100607, end: 20100611
  4. EXELON [Suspect]
     Indication: PARKINSON'S DISEASE
     Dosage: 1 DF, 2X/DAY:BID
     Route: 048
     Dates: start: 20060707, end: 20100601
  5. LEXOMIL [Concomitant]
     Indication: ANXIETY
     Dosage: UNK, UNKNOWN
     Route: 048
     Dates: end: 20100601
  6. MOTILIUM                           /00498201/ [Concomitant]
     Indication: PRODUCT USED FOR UNKNOWN INDICATION
     Dosage: UNK, UNK
     Route: 048
     Dates: start: 20091201

REACTIONS (1)
  - LEUKOPENIA [None]
